FAERS Safety Report 17547379 (Version 1)
Quarter: 2020Q1

REPORT INFORMATION
  Report Type: Spontaneous
  Country: IT (occurrence: IT)
  Receive Date: 20200316
  Receipt Date: 20200316
  Transmission Date: 20200409
  Serious: Yes (Death)
  Sender: FDA-Public Use
  Company Number: IT-PRAGMA PHARMACEUTICALS, LLC-2020PRG00019

PATIENT

DRUGS (1)
  1. AMOXICILLIN-CLAVULANATE [Suspect]
     Active Substance: AMOXICILLIN\CLAVULANIC ACID
     Route: 065

REACTIONS (1)
  - Drug-induced liver injury [Fatal]
